FAERS Safety Report 5231622-6 (Version None)
Quarter: 2007Q1

REPORT INFORMATION
  Report Type: 
  Country: None (occurrence: None)
  Receive Date: 20070202
  Receipt Date: 20070124
  Transmission Date: 20070707
  Serious: Yes (Hospitalization)
  Sender: FDA-Public Use
  Company Number: 2007SP001456

PATIENT
  Age: 49 Year
  Sex: Female
  Weight: 73.6 kg

DRUGS (3)
  1. TEMOZOLOMIDE (S-P) [Suspect]
     Indication: GLIOBLASTOMA MULTIFORME
     Dosage: SEE IMAGE
     Route: 048
     Dates: start: 20060731
  2. DECADRON [Suspect]
     Indication: DRUG USE FOR UNKNOWN INDICATION
  3. RADIATION [Concomitant]

REACTIONS (2)
  - GASTROENTERITIS [None]
  - HIATUS HERNIA [None]
